FAERS Safety Report 9671323 (Version 1)
Quarter: 2013Q4

REPORT INFORMATION
  Report Type: Spontaneous
  Country: US (occurrence: US)
  Receive Date: 20131106
  Receipt Date: 20131106
  Transmission Date: 20140711
  Serious: Yes (Other)
  Sender: FDA-Public Use
  Company Number: US-BAYER-2013-135045

PATIENT
  Age: 69 Year
  Sex: Male

DRUGS (1)
  1. MAGNEVIST [Suspect]
     Indication: ANGIOGRAM
     Dosage: 25 ML, ONCE
     Dates: start: 20131104, end: 20131104

REACTIONS (6)
  - Tachycardia [Recovered/Resolved]
  - Dyspnoea [Recovered/Resolved]
  - Dysphagia [Recovered/Resolved]
  - Hypoaesthesia [Recovered/Resolved]
  - Paraesthesia [Recovered/Resolved]
  - Nasal congestion [Recovered/Resolved]
